FAERS Safety Report 10235692 (Version 2)
Quarter: 2014Q2

REPORT INFORMATION
  Report Type: Spontaneous
  Country: US (occurrence: US)
  Receive Date: 20140613
  Receipt Date: 20140617
  Transmission Date: 20141212
  Serious: No
  Sender: FDA-Public Use
  Company Number: US-BAYER-2014-088761

PATIENT
  Age: 27 Year
  Sex: Female
  Weight: 62 kg

DRUGS (1)
  1. GADAVIST [Suspect]
     Dosage: UNK UNK, ONCE
     Route: 042
     Dates: start: 20140611, end: 20140611

REACTIONS (4)
  - Rash [None]
  - Urticaria [None]
  - Erythema [None]
  - Pruritus [None]
